FAERS Safety Report 10120803 (Version 2)
Quarter: 2014Q3

REPORT INFORMATION
  Report Type: Spontaneous
  Country: JP (occurrence: JP)
  Receive Date: 20140425
  Receipt Date: 20140818
  Transmission Date: 20150326
  Serious: Yes (Other)
  Sender: FDA-Public Use
  Company Number: JP-BRISTOL-MYERS SQUIBB COMPANY-20662680

PATIENT
  Age: 29 Year
  Sex: Female

DRUGS (3)
  1. AMOBAN [Concomitant]
     Active Substance: ZOPICLONE
     Dosage: TABS
  2. PAXIL CR [Concomitant]
     Active Substance: PAROXETINE HYDROCHLORIDE
     Dosage: TABS
  3. ABILIFY [Suspect]
     Active Substance: ARIPIPRAZOLE
     Indication: DEPRESSION
     Route: 048
     Dates: start: 20131128, end: 20140322

REACTIONS (2)
  - Sudden onset of sleep [Recovered/Resolved]
  - Loss of consciousness [Recovered/Resolved]

NARRATIVE: CASE EVENT DATE: 201312
